FAERS Safety Report 5070407-0 (Version None)
Quarter: 2006Q3

REPORT INFORMATION
  Report Type: 
  Country: None (occurrence: None)
  Receive Date: 20060714
  Receipt Date: 20060411
  Transmission Date: 20061208
  Serious: No
  Sender: FDA-Public Use
  Company Number: 2006SP001685

PATIENT
  Age: 54 Year
  Sex: Female
  Weight: 70.7611 kg

DRUGS (27)
  1. LUNESTA [Suspect]
     Indication: INSOMNIA
     Dosage: 1.5 MG;HS;ORAL
     Route: 048
     Dates: start: 20060327, end: 20060415
  2. LASIX [Concomitant]
  3. COREG [Concomitant]
  4. DIGITEK [Concomitant]
  5. ZESTRIL [Concomitant]
  6. PLAVIX [Concomitant]
  7. ZETIA [Concomitant]
  8. CRESTOR [Concomitant]
  9. TRICOR [Concomitant]
  10. POTASSIUM CHLORIDE [Concomitant]
  11. THEO-DUR [Concomitant]
  12. ACIPHEX [Concomitant]
  13. PANCREASE [Concomitant]
  14. LEXAPRO [Concomitant]
  15. ESTROGENS CONJUGATED [Concomitant]
  16. PROVERA [Concomitant]
  17. XANAX [Concomitant]
  18. ECOTRIN [Concomitant]
  19. FERROUS SULFATE TAB [Concomitant]
  20. CALCIUM GLUCONATE [Concomitant]
  21. VITAMIN A+E [Concomitant]
  22. FISH OIL [Concomitant]
  23. L-CARNITINE [Concomitant]
  24. VITAMINS [Concomitant]
  25. NITROSTAT [Concomitant]
  26. ASMANEX [Concomitant]
  27. BECONASE [Concomitant]

REACTIONS (3)
  - DRUG INEFFECTIVE [None]
  - DYSGEUSIA [None]
  - INITIAL INSOMNIA [None]
